FAERS Safety Report 17526678 (Version 5)
Quarter: 2020Q3

REPORT INFORMATION
  Report Type: Report from Study
  Country: None (occurrence: US)
  Receive Date: 20200311
  Receipt Date: 20200704
  Transmission Date: 20201102
  Serious: Yes (Hospitalization, Other)
  Sender: FDA-Public Use
  Company Number: US-ABBVIE-20P-163-3309382-00

PATIENT
  Age: 82 Year
  Sex: Female
  Weight: 57.2 kg

DRUGS (2)
  1. IMBRUVICA [Suspect]
     Active Substance: IBRUTINIB
     Indication: B-CELL SMALL LYMPHOCYTIC LYMPHOMA
     Route: 048
     Dates: start: 20190305
  2. IMBRUVICA [Suspect]
     Active Substance: IBRUTINIB
     Route: 048

REACTIONS (9)
  - Hip fracture [Unknown]
  - Fall [Unknown]
  - Subdural haematoma [Unknown]
  - Pruritus genital [Unknown]
  - Head injury [Unknown]
  - Disorientation [Unknown]
  - Lower limb fracture [Unknown]
  - Fluid retention [Unknown]
  - Staphylococcal infection [Unknown]

NARRATIVE: CASE EVENT DATE: 202002
